FAERS Safety Report 14631173 (Version 2)
Quarter: 2018Q1

REPORT INFORMATION
  Report Type: Spontaneous
  Country: US (occurrence: US)
  Receive Date: 20180313
  Receipt Date: 20180316
  Transmission Date: 20180509
  Serious: No
  Sender: FDA-Public Use
  Company Number: US-PFIZER INC-2018099815

PATIENT
  Age: 41 Year
  Sex: Female
  Weight: 81.65 kg

DRUGS (2)
  1. LYRICA [Suspect]
     Active Substance: PREGABALIN
     Indication: FIBROMYALGIA
     Dosage: 150 MG, 2X/DAY (1 CAPSULE TAKEN BY MOUTH IN THE MORNING AND 1 CAPSULE TAKEN BY MOUTH AT NIGHT DAILY)
     Route: 048
     Dates: start: 20180228, end: 201803
  2. LYRICA [Suspect]
     Active Substance: PREGABALIN
     Dosage: 150 MG, 2X/DAY 1 CAPSULE TAKEN BY MOUTH IN THE MORNING AND 1 CAPSULE TAKEN BY MOUTH AT NIGHT DAILY)
     Route: 048
     Dates: start: 20180307

REACTIONS (4)
  - Drug ineffective [Not Recovered/Not Resolved]
  - Arthralgia [Not Recovered/Not Resolved]
  - Condition aggravated [Not Recovered/Not Resolved]
  - Migraine [Recovered/Resolved]

NARRATIVE: CASE EVENT DATE: 20180228
